FAERS Safety Report 9202933 (Version 6)
Quarter: 2013Q3

REPORT INFORMATION
  Report Type: Spontaneous
  Country: US (occurrence: US)
  Receive Date: 20130402
  Receipt Date: 20130902
  Transmission Date: 20140515
  Serious: No
  Sender: FDA-Public Use
  Company Number: US-BIOGENIDEC-2013BI027440

PATIENT
  Age: 30 Year
  Sex: Male

DRUGS (2)
  1. TYSABRI [Suspect]
     Indication: MULTIPLE SCLEROSIS
     Route: 042
     Dates: start: 20130307
  2. ZYRTEC [Concomitant]
     Indication: PREMEDICATION

REACTIONS (2)
  - Lip swelling [Recovered/Resolved]
  - Hypersensitivity [Recovered/Resolved]
